FAERS Safety Report 7275433-9 (Version None)
Quarter: 2011Q1

REPORT INFORMATION
  Report Type: 
  Country: None (occurrence: None)
  Receive Date: 20110204
  Receipt Date: 20110126
  Transmission Date: 20110831
  Serious: Yes (Other)
  Sender: FDA-Public Use
  Company Number: MX-ROCHE-756750

PATIENT
  Age: 44 Year
  Sex: Male

DRUGS (4)
  1. SAQUINAVIR [Suspect]
     Route: 065
  2. SULFAMETHOXAZOLE AND TRIMETHOPRIM [Concomitant]
     Dosage: 160+800 MG EVERY DAY
     Route: 048
  3. ZIDOVUDINE [Suspect]
     Route: 065
  4. LAMIVUDINE [Suspect]
     Route: 065

REACTIONS (1)
  - DEEP VEIN THROMBOSIS [None]
